FAERS Safety Report 20140694 (Version 1)
Quarter: 2021Q4

REPORT INFORMATION
  Report Type: Spontaneous
  Country: BR (occurrence: BR)
  Receive Date: 20211202
  Receipt Date: 20211202
  Transmission Date: 20220303
  Serious: Yes (Other)
  Sender: FDA-Public Use
  Company Number: BR-NOVARTISPH-NVSC2019BR086561

PATIENT
  Sex: Female
  Weight: 74 kg

DRUGS (4)
  1. TIMOLOL\TRAVOPROST [Suspect]
     Active Substance: TIMOLOL\TRAVOPROST
     Indication: Intraocular pressure increased
     Dosage: 1 GTT, QHS (NIGHT) (1 DROP IN EACH 5ML)
     Route: 047
     Dates: start: 2012
  2. METFORMIN [Concomitant]
     Active Substance: METFORMIN HYDROCHLORIDE
     Indication: Diabetes mellitus
     Dosage: 3 DF, QD (STARTED 25 YEARS AGO)
     Route: 048
  3. LOSARTAN [Concomitant]
     Active Substance: LOSARTAN
     Indication: Hypertension
     Dosage: 1 DF, QD (20 YEARS AGO)
     Route: 048
  4. ALENDRONIC ACID [Concomitant]
     Active Substance: ALENDRONIC ACID
     Indication: Arthritis
     Dosage: 1 DF, QD (1 YEAR AGO)
     Route: 048

REACTIONS (2)
  - Cataract [Unknown]
  - Crying [Recovering/Resolving]
